FAERS Safety Report 6695244-2 (Version None)
Quarter: 2010Q2

REPORT INFORMATION
  Report Type: 
  Country: None (occurrence: None)
  Receive Date: 20100423
  Receipt Date: 20100415
  Transmission Date: 20101027
  Serious: Yes (Other)
  Sender: FDA-Public Use
  Company Number: GB-GILEAD-2010-0028525

PATIENT
  Age: 38 Year
  Sex: Female

DRUGS (2)
  1. VIREAD [Suspect]
     Indication: HEPATITIS B
     Route: 048
     Dates: start: 20090806
  2. VIRAMUNE [Concomitant]
     Route: 048
     Dates: start: 20080819, end: 20090806

REACTIONS (1)
  - ABORTION SPONTANEOUS [None]
